FAERS Safety Report 4279895-0 (Version None)
Quarter: 2004Q1

REPORT INFORMATION
  Report Type: 
  Country: None (occurrence: None)
  Receive Date: 20040127
  Receipt Date: 20040127
  Transmission Date: 20041129
  Serious: Yes (Disabling, Congenital Anomaly, Other)
  Sender: FDA-Public Use
  Company Number: None

PATIENT
  Age: 75 Year
  Sex: Female
  Weight: 58.0604 kg

DRUGS (2)
  1. LIPITOR [Suspect]
     Indication: BLOOD CHOLESTEROL
     Dosage: 10 MG DAILY ORAL
     Route: 048
     Dates: start: 20031001, end: 20031227
  2. PROVOCAL [Concomitant]

REACTIONS (4)
  - CONFUSIONAL STATE [None]
  - FATIGUE [None]
  - MENTAL IMPAIRMENT [None]
  - MUSCLE FATIGUE [None]
